FAERS Safety Report 9467623 (Version 3)
Quarter: 2013Q3

REPORT INFORMATION
  Report Type: Report from Study
  Country: CA (occurrence: CA)
  Receive Date: 20130821
  Receipt Date: 20130923
  Transmission Date: 20140515
  Serious: Yes (Hospitalization, Other)
  Sender: FDA-Public Use
  Company Number: PHHY2013CA030156

PATIENT
  Age: 51 Year
  Sex: Male

DRUGS (2)
  1. CLOZARIL [Suspect]
     Indication: SCHIZOPHRENIA
     Dosage: UNK UKN, UNK
     Dates: start: 20130226
  2. CLOZARIL [Suspect]
     Dosage: UNK UKN, UNK

REACTIONS (11)
  - International normalised ratio increased [Recovered/Resolved]
  - Coma [Unknown]
  - Wound [Unknown]
  - Haematoma [Unknown]
  - Stupor [Unknown]
  - Loss of consciousness [Unknown]
  - Movement disorder [Unknown]
  - Delirium [Unknown]
  - Incontinence [Unknown]
  - Convulsion [Recovered/Resolved]
  - Oedema peripheral [Unknown]
